FAERS Safety Report 6534658-8 (Version None)
Quarter: 2010Q1

REPORT INFORMATION
  Report Type: 
  Country: None (occurrence: None)
  Receive Date: 20100112
  Receipt Date: 20100105
  Transmission Date: 20100710
  Serious: Yes (Other)
  Sender: FDA-Public Use
  Company Number: GXKR2010GB00506

PATIENT
  Age: 34 Year
  Sex: Female

DRUGS (3)
  1. DIAZEPAM (NGX) [Suspect]
     Indication: AGITATION
     Dosage: 2 MG, QD
     Route: 048
  2. ABILIFY [Suspect]
     Indication: PSYCHOTIC DISORDER
     Dosage: 30 MG, QD
     Route: 048
     Dates: start: 20041201
  3. VERAPAMIL [Concomitant]
     Indication: WOLFF-PARKINSON-WHITE SYNDROME
     Dosage: 120 MG, QD
     Route: 048
     Dates: start: 20080901

REACTIONS (2)
  - ELECTROCARDIOGRAM QT PROLONGED [None]
  - TACHYCARDIA [None]
